FAERS Safety Report 5857129-0 (Version None)
Quarter: 2008Q3

REPORT INFORMATION
  Report Type: 
  Country: None (occurrence: None)
  Receive Date: 20080825
  Receipt Date: 20080811
  Transmission Date: 20090109
  Serious: Yes (Hospitalization, Other)
  Sender: FDA-Public Use
  Company Number: NL-ELI_LILLY_AND_COMPANY-NL200802001958

PATIENT
  Sex: Male
  Weight: 63 kg

DRUGS (4)
  1. STRATTERA [Suspect]
     Indication: IMPULSIVE BEHAVIOUR
     Dosage: 40 MG, DAILY (1/D)
     Route: 048
     Dates: start: 20070401, end: 20080202
  2. STRATTERA [Suspect]
     Dosage: 1200 MG, ONCE
     Route: 048
     Dates: start: 20080207, end: 20080207
  3. CYCLOSPORINE [Concomitant]
     Dosage: 1625 MG, ONCE
     Dates: start: 20070207
  4. ALCOHOL [Concomitant]
     Dosage: UNK, UNK
     Route: 048
     Dates: start: 20080207

REACTIONS (10)
  - BLOOD PRESSURE INCREASED [None]
  - DISORIENTATION [None]
  - HEADACHE [None]
  - INTENTIONAL OVERDOSE [None]
  - NAUSEA [None]
  - SINUS TACHYCARDIA [None]
  - SOMNOLENCE [None]
  - SUICIDAL IDEATION [None]
  - SUICIDE ATTEMPT [None]
  - VOMITING [None]
